FAERS Safety Report 9527096 (Version 3)
Quarter: 2013Q4

REPORT INFORMATION
  Report Type: Spontaneous
  Country: US (occurrence: US)
  Receive Date: 20130916
  Receipt Date: 20131119
  Transmission Date: 20140711
  Serious: Yes (Hospitalization, Other)
  Sender: FDA-Public Use
  Company Number: US-009507513-1309USA006823

PATIENT
  Sex: Female
  Weight: 97.51 kg

DRUGS (6)
  1. FOSAMAX [Suspect]
     Indication: OSTEOPENIA
     Dosage: UNK
     Route: 048
     Dates: start: 19951001
  2. FOSAMAX [Suspect]
     Dosage: 70 MG, UNK
     Route: 048
     Dates: end: 20020101
  3. VITAMINS (UNSPECIFIED) [Concomitant]
     Dosage: UNK
     Dates: start: 1990
  4. VITAMIN D (UNSPECIFIED) [Concomitant]
     Dosage: 2000 IU, BID
     Dates: start: 1990
  5. CALCIUM (UNSPECIFIED) [Concomitant]
     Dosage: 1000 MG, UNK
  6. PROTONIX [Concomitant]
     Dosage: 40 MG, QD
     Dates: start: 1998

REACTIONS (24)
  - Intramedullary rod insertion [Unknown]
  - Breast cancer [Unknown]
  - Breast prosthesis implantation [Unknown]
  - Knee arthroplasty [Unknown]
  - Mastectomy [Unknown]
  - Femur fracture [Unknown]
  - Low turnover osteopathy [Unknown]
  - Hypertension [Unknown]
  - Hypercholesterolaemia [Unknown]
  - Adverse event [Unknown]
  - Insomnia [Unknown]
  - Arrhythmia [Unknown]
  - Clavicle fracture [Unknown]
  - Atrial fibrillation [Unknown]
  - Anaemia [Unknown]
  - Anxiety [Unknown]
  - Palpitations [Unknown]
  - Hyperparathyroidism [Unknown]
  - Device failure [Unknown]
  - Medical device removal [Unknown]
  - Vocal cord thickening [Unknown]
  - Melanocytic naevus [Unknown]
  - Drug ineffective [Unknown]
  - Gastrooesophageal reflux disease [Unknown]
